FAERS Safety Report 8334724-0 (Version None)
Quarter: 2012Q2

REPORT INFORMATION
  Report Type: 
  Country: None (occurrence: None)
  Receive Date: 20120503
  Receipt Date: 20120420
  Transmission Date: 20120825
  Serious: Yes (Hospitalization)
  Sender: FDA-Public Use
  Company Number: US-ROCHE-1062075

PATIENT
  Sex: Female
  Weight: 66.67 kg

DRUGS (22)
  1. SYMBICORT [Concomitant]
     Dates: start: 20120321
  2. BORTEZOMIB [Suspect]
     Indication: DIFFUSE LARGE B-CELL LYMPHOMA
     Dosage: CYCLIC
     Dates: start: 20120306, end: 20120329
  3. DOXORUBICIN HYDROCHLORIDE [Suspect]
     Indication: DIFFUSE LARGE B-CELL LYMPHOMA
     Dates: start: 20120306, end: 20120329
  4. BETAMETHASONE VALERATE [Concomitant]
  5. LORAZEPAM [Concomitant]
     Dates: start: 20120330
  6. VAGIFEM [Concomitant]
     Dates: start: 20110908
  7. VINCRISTINE SULFATE [Suspect]
     Indication: DIFFUSE LARGE B-CELL LYMPHOMA
     Dates: start: 20120306, end: 20120329
  8. OMEPRAZOLE [Concomitant]
     Dates: start: 20110907
  9. ONDANSETRON [Concomitant]
     Dates: start: 20120301
  10. SIMVASTATIN [Concomitant]
     Dates: start: 20110609
  11. CYCLOPHOSPHAMIDE [Suspect]
     Indication: DIFFUSE LARGE B-CELL LYMPHOMA
     Dates: start: 20120306, end: 20120329
  12. PROCHLORPERAZINE MALEATE [Concomitant]
     Dates: start: 20120301
  13. DOCUSATE SODIUM [Concomitant]
     Dates: start: 20111221
  14. HYDROCHLOROTHIAZIDE [Concomitant]
     Dates: start: 20110609
  15. LORATADINE [Concomitant]
     Dates: start: 20120321
  16. PREDNISONE TAB [Suspect]
     Indication: DIFFUSE LARGE B-CELL LYMPHOMA
     Dates: start: 20120306, end: 20120329
  17. CIPROFLOXACIN [Concomitant]
     Dates: start: 20120314
  18. EMEND [Concomitant]
     Dates: start: 20120330
  19. MABTHERA [Suspect]
     Indication: DIFFUSE LARGE B-CELL LYMPHOMA
     Dates: start: 20120306, end: 20120329
  20. NEUPOGEN [Concomitant]
     Dates: start: 20120314
  21. HYDROCODONE BITARTRATE + ACETAMINOPHEN [Concomitant]
     Dates: start: 20120201
  22. SULFAMETHOXAZOLE AND TRIMETHOPRIM [Concomitant]
     Dates: start: 20120321

REACTIONS (2)
  - ORTHOSTATIC HYPOTENSION [None]
  - SYNCOPE [None]
